FAERS Safety Report 9337889 (Version 1)
Quarter: 2013Q2

REPORT INFORMATION
  Report Type: Report from Study
  Country: CA (occurrence: CA)
  Receive Date: 20130608
  Receipt Date: 20130608
  Transmission Date: 20140414
  Serious: Yes (Other)
  Sender: FDA-Public Use
  Company Number: CA-ROCHE-1176313

PATIENT
  Age: 69 Year
  Sex: Female
  Weight: 65.8 kg

DRUGS (2)
  1. AVASTIN [Suspect]
     Indication: COLORECTAL CANCER
     Route: 042
     Dates: start: 20121108, end: 20121224
  2. LOVENOX [Concomitant]
     Route: 065

REACTIONS (2)
  - Hypertension [Recovered/Resolved]
  - Disease progression [Unknown]
